FAERS Safety Report 5638205-4 (Version None)
Quarter: 2008Q1

REPORT INFORMATION
  Report Type: 
  Country: None (occurrence: None)
  Receive Date: 20080226
  Receipt Date: 20080222
  Transmission Date: 20080703
  Serious: Yes (Hospitalization)
  Sender: FDA-Public Use
  Company Number: US-BRISTOL-MYERS SQUIBB COMPANY-14087191

PATIENT
  Age: 81 Year
  Sex: Female

DRUGS (1)
  1. COUMADIN [Suspect]
     Indication: MITRAL VALVE REPLACEMENT
     Dosage: 5MG ON MONDAY, WEDNESDAY, FRIDAY AND 2MG ON TUESDAY, THURSDAY, SATURDAY AND SUNDAY

REACTIONS (4)
  - ERYTHEMA [None]
  - INTERNATIONAL NORMALISED RATIO FLUCTUATION [None]
  - PNEUMONIA [None]
  - THROMBOSIS [None]
